FAERS Safety Report 13349548 (Version 2)
Quarter: 2017Q2

REPORT INFORMATION
  Report Type: Spontaneous
  Country: FR (occurrence: FR)
  Receive Date: 20170320
  Receipt Date: 20170411
  Transmission Date: 20170830
  Serious: Yes (Hospitalization)
  Sender: FDA-Public Use
  Company Number: FR-AUROBINDO-AUR-APL-2017-31078

PATIENT
  Age: 87 Year
  Sex: Female

DRUGS (1)
  1. METFORMIN [Suspect]
     Active Substance: METFORMIN HYDROCHLORIDE
     Indication: TYPE 2 DIABETES MELLITUS
     Route: 065

REACTIONS (12)
  - Sepsis [Unknown]
  - Diarrhoea [Unknown]
  - Tachypnoea [Unknown]
  - Lactic acidosis [Unknown]
  - General physical health deterioration [Unknown]
  - Tachycardia [Unknown]
  - Hyperkalaemia [Unknown]
  - Hypotension [Unknown]
  - Anuria [Unknown]
  - Dehydration [Unknown]
  - Acute kidney injury [Unknown]
  - Hypothermia [Unknown]
